FAERS Safety Report 5592859-X (Version None)
Quarter: 2008Q1

REPORT INFORMATION
  Report Type: 
  Country: None (occurrence: None)
  Receive Date: 20080116
  Receipt Date: 20080108
  Transmission Date: 20080703
  Serious: Yes (Hospitalization)
  Sender: FDA-Public Use
  Company Number: PHRM2008FR00525

PATIENT
  Age: 86 Year
  Sex: Female

DRUGS (11)
  1. TEGRETOL [Suspect]
     Indication: FACIAL NEURALGIA
     Dosage: 400 MG, QD
     Route: 048
     Dates: start: 20070904
  2. ADONCOR [Concomitant]
  3. DILTIAZEM HCL [Concomitant]
  4. MOVICOL [Concomitant]
  5. LANZOR [Concomitant]
  6. IXPRIM [Concomitant]
  7. TEGRETOL [Suspect]
     Indication: FACIAL NEURALGIA
     Dosage: 200 MG, TID
     Route: 048
     Dates: start: 20070904
  8. LYRICA [Suspect]
     Indication: FACIAL NEURALGIA
     Dosage: 75 MG/DAY
     Route: 048
     Dates: start: 20070904, end: 20070908
  9. SPIRONOLACTONE [Concomitant]
     Dosage: 1 DF, QD
  10. PLAVIX [Concomitant]
  11. BETASERC [Concomitant]

REACTIONS (10)
  - CREATININE RENAL CLEARANCE DECREASED [None]
  - ECCHYMOSIS [None]
  - FALL [None]
  - HAND FRACTURE [None]
  - HEADACHE [None]
  - HYPOKALAEMIA [None]
  - HYPONATRAEMIA [None]
  - NAUSEA [None]
  - SOMNOLENCE [None]
  - VOMITING [None]
